FAERS Safety Report 12371686 (Version 3)
Quarter: 2016Q4

REPORT INFORMATION
  Report Type: Spontaneous
  Country: US (occurrence: US)
  Receive Date: 20160516
  Receipt Date: 20161114
  Transmission Date: 20170207
  Serious: No
  Sender: FDA-Public Use
  Company Number: US-GLAXOSMITHKLINE-US2016067836

PATIENT
  Age: 69 Year
  Sex: Female

DRUGS (6)
  1. OMEPRAZOLE. [Concomitant]
     Active Substance: OMEPRAZOLE
  2. WELLBUTRIN SR [Suspect]
     Active Substance: BUPROPION HYDROCHLORIDE
     Indication: DEPRESSION
     Dosage: 100 MG
     Route: 048
  3. INDOZEN [Concomitant]
  4. SYNTHROID [Concomitant]
     Active Substance: LEVOTHYROXINE SODIUM
  5. PROZAC [Concomitant]
     Active Substance: FLUOXETINE HYDROCHLORIDE
  6. CLIMARA [Concomitant]
     Active Substance: ESTRADIOL

REACTIONS (6)
  - Wrong technique in product usage process [Unknown]
  - Feeling abnormal [Unknown]
  - Boredom [Unknown]
  - Fatigue [Unknown]
  - Product quality issue [Unknown]
  - Asthenia [Unknown]

NARRATIVE: CASE EVENT DATE: 20160509
